FAERS Safety Report 9851406 (Version 2)
Quarter: 2015Q4

REPORT INFORMATION
  Report Type: Report from Study
  Country: US (occurrence: US)
  Receive Date: 20140129
  Receipt Date: 20151005
  Transmission Date: 20160305
  Serious: Yes (Other)
  Sender: FDA-Public Use
  Company Number: US-ROCHE-1338729

PATIENT
  Sex: Female

DRUGS (1)
  1. LUCENTIS [Suspect]
     Active Substance: RANIBIZUMAB
     Indication: NEOVASCULAR AGE-RELATED MACULAR DEGENERATION
     Route: 050

REACTIONS (6)
  - Chronic obstructive pulmonary disease [Unknown]
  - Cataract [Unknown]
  - Emphysema [Unknown]
  - Lung neoplasm malignant [Unknown]
  - Visual acuity reduced [Unknown]
  - Glaucoma [Unknown]
